FAERS Safety Report 17905672 (Version 1)
Quarter: 2020Q2

REPORT INFORMATION
  Report Type: Spontaneous
  Country: US (occurrence: US)
  Receive Date: 20200616
  Receipt Date: 20200616
  Transmission Date: 20200714
  Serious: No
  Sender: FDA-Public Use
  Company Number: US-ROCHE-2371327

PATIENT
  Sex: Female

DRUGS (14)
  1. VITAMIN C [Concomitant]
     Active Substance: ASCORBIC ACID
  2. BUPROPION. [Concomitant]
     Active Substance: BUPROPION
  3. ERYTHROMYCIN. [Concomitant]
     Active Substance: ERYTHROMYCIN
  4. LISINOPRIL. [Concomitant]
     Active Substance: LISINOPRIL
  5. ASPIRIN [ACETYLSALICYLIC ACID] [Concomitant]
     Active Substance: ASPIRIN
  6. HUMALOG [Concomitant]
     Active Substance: INSULIN LISPRO
  7. METFORMIN [Concomitant]
     Active Substance: METFORMIN HYDROCHLORIDE
     Route: 065
  8. FOLIC ACID. [Concomitant]
     Active Substance: FOLIC ACID
  9. LANTUS [Concomitant]
     Active Substance: INSULIN GLARGINE
  10. ACTEMRA [Suspect]
     Active Substance: TOCILIZUMAB
     Indication: RHEUMATOID ARTHRITIS
     Route: 058
  11. HYDROCHLORTHIAZID [Concomitant]
     Active Substance: HYDROCHLOROTHIAZIDE
  12. FENOFIBRATE. [Concomitant]
     Active Substance: FENOFIBRATE
  13. TYLENOL [Concomitant]
     Active Substance: ACETAMINOPHEN
  14. PREDNISONE. [Concomitant]
     Active Substance: PREDNISONE

REACTIONS (2)
  - No adverse event [Unknown]
  - Drug ineffective [Unknown]
